FAERS Safety Report 16361131 (Version 1)
Quarter: 2019Q2

REPORT INFORMATION
  Report Type: Spontaneous
  Country: BY (occurrence: BY)
  Receive Date: 20190528
  Receipt Date: 20190528
  Transmission Date: 20190711
  Serious: Yes (Life-Threatening, Other)
  Sender: FDA-Public Use
  Company Number: BY-BAYER-2019-095247

PATIENT
  Age: 53 Year
  Sex: Male
  Weight: 60 kg

DRUGS (21)
  1. COTRIMOXAZOLE [Suspect]
     Active Substance: SULFAMETHOXAZOLE\TRIMETHOPRIM
     Indication: PRODUCT USED FOR UNKNOWN INDICATION
     Dosage: 2 DF, QD
     Route: 048
     Dates: start: 20180724, end: 20181022
  2. CYCLOSERINE. [Suspect]
     Active Substance: CYCLOSERINE
     Indication: TUBERCULOSIS
     Dosage: 750 MG, QD
     Route: 048
     Dates: start: 20180724, end: 20181022
  3. TENOF EM [Concomitant]
     Dosage: UNK
     Dates: start: 20180724, end: 20181022
  4. VIT B1 [Concomitant]
     Active Substance: THIAMINE HYDROCHLORIDE
     Dosage: UNK
     Dates: start: 20180727, end: 20180806
  5. LINEZOLID. [Suspect]
     Active Substance: LINEZOLID
     Indication: TUBERCULOSIS
     Dosage: UNK
     Dates: start: 201811
  6. NEIROMIDIN [Concomitant]
     Active Substance: IPIDACRINE
     Dosage: UNK
     Dates: start: 20180727, end: 20180806
  7. ZOPICLON [Concomitant]
     Active Substance: ZOPICLONE
     Dosage: UNK
     Dates: start: 20180724, end: 20181022
  8. NEUROVIT [THIAMINE HYDROCHLORIDE] [Concomitant]
     Dosage: UNK
     Dates: start: 20180815, end: 20180825
  9. DELAMANID [Suspect]
     Active Substance: DELAMANID
     Indication: TUBERCULOSIS
     Dosage: 200 MG, QD
     Route: 048
     Dates: start: 201811, end: 20181122
  10. ZOPICLON [Concomitant]
     Active Substance: ZOPICLONE
     Dosage: UNK
     Dates: start: 20181130
  11. EUPHYLLIN [AMINOPHYLLINE] [Concomitant]
  12. AVELOX [Suspect]
     Active Substance: MOXIFLOXACIN HYDROCHLORIDE
     Indication: TUBERCULOSIS
     Dosage: 400 MG, QD
     Route: 048
     Dates: start: 201811
  13. LINEZOLID. [Suspect]
     Active Substance: LINEZOLID
     Indication: TUBERCULOSIS
     Dosage: 600 MG, QD
     Route: 048
     Dates: start: 20180724, end: 20181022
  14. CYCLOSERINE. [Suspect]
     Active Substance: CYCLOSERINE
     Indication: TUBERCULOSIS
     Dosage: 750 MG, QD
     Route: 048
     Dates: start: 201811
  15. COTRIMOXAZOLE [Suspect]
     Active Substance: SULFAMETHOXAZOLE\TRIMETHOPRIM
     Indication: PRODUCT USED FOR UNKNOWN INDICATION
     Dosage: 2 DF, QD
     Route: 048
     Dates: start: 20181127
  16. ESTIVAN [Concomitant]
     Dosage: UNK
     Dates: start: 20181127
  17. CLOFAZIMINE [Suspect]
     Active Substance: CLOFAZIMINE
     Indication: TUBERCULOSIS
     Dosage: 200 MG, QD
     Route: 048
     Dates: start: 20180724, end: 20181022
  18. CLOFAZIMINE [Suspect]
     Active Substance: CLOFAZIMINE
     Indication: TUBERCULOSIS
     Dosage: 100 MG, QD
     Route: 048
     Dates: start: 201811
  19. BISOPROLOL [Concomitant]
     Active Substance: BISOPROLOL
     Dosage: UNK
     Dates: start: 20180724, end: 20181022
  20. TENOF EM [Concomitant]
     Dosage: UNK
     Dates: start: 20181127
  21. ESTIVAN [Concomitant]
     Dosage: UNK
     Dates: start: 20180724, end: 20181022

REACTIONS (10)
  - Gastric ulcer [Unknown]
  - Erosive oesophagitis [Unknown]
  - Hepatorenal failure [Recovered/Resolved with Sequelae]
  - Gastrointestinal haemorrhage [Recovered/Resolved]
  - Hepatic cirrhosis [Unknown]
  - Alcohol poisoning [Unknown]
  - Haemoglobin decreased [Recovered/Resolved]
  - Portal hypertension [Unknown]
  - Gastric varices [Unknown]
  - Varices oesophageal [Unknown]

NARRATIVE: CASE EVENT DATE: 20180910
